FAERS Safety Report 7415089-5 (Version None)
Quarter: 2011Q2

REPORT INFORMATION
  Report Type: 
  Country: None (occurrence: None)
  Receive Date: 20110414
  Receipt Date: 20110410
  Transmission Date: 20111010
  Serious: Yes (Other)
  Sender: FDA-Public Use
  Company Number: FR-ROCHE-770571

PATIENT
  Sex: Female

DRUGS (1)
  1. BONIVA [Suspect]
     Route: 065

REACTIONS (1)
  - PERIODONTAL DISEASE [None]
